FAERS Safety Report 20329428 (Version 1)
Quarter: 2022Q1

REPORT INFORMATION
  Report Type: Spontaneous
  Country: US (occurrence: US)
  Receive Date: 20220112
  Receipt Date: 20220112
  Transmission Date: 20220423
  Serious: No
  Sender: FDA-Public Use
  Company Number: US-PFIZER INC-202101390608

PATIENT
  Age: 78 Year
  Sex: Male

DRUGS (1)
  1. INLYTA [Suspect]
     Active Substance: AXITINIB
     Indication: Renal neoplasm
     Dosage: 1 MG
     Dates: start: 20210816, end: 20211014

REACTIONS (1)
  - Neoplasm progression [Unknown]
